FAERS Safety Report 5372706-1 (Version None)
Quarter: 2007Q2

REPORT INFORMATION
  Report Type: 
  Country: None (occurrence: None)
  Receive Date: 20070619
  Receipt Date: 20060620
  Transmission Date: 20071010
  Serious: Yes (Disabling)
  Sender: FDA-Public Use
  Company Number: WAES 0606USA03810

PATIENT
  Sex: Male

DRUGS (4)
  1. COZAAR [Suspect]
     Indication: BLOOD PRESSURE
     Dosage: 25 MG/DAILY/PO
     Route: 048
     Dates: start: 20060601
  2. ADVAIR DISKUS 100/50 [Concomitant]
  3. [THERAPY UNSPECIFIED] [Concomitant]
  4. RIBOFLAVIN TAB [Concomitant]

REACTIONS (6)
  - ARTHRALGIA [None]
  - BACK PAIN [None]
  - CHEST PAIN [None]
  - HYPERHIDROSIS [None]
  - MUSCLE SPASMS [None]
  - MYALGIA [None]
